FAERS Safety Report 8087187-7 (Version None)
Quarter: 2012Q1

REPORT INFORMATION
  Report Type: 
  Country: None (occurrence: None)
  Receive Date: 20120128
  Receipt Date: 20110421
  Transmission Date: 20120608
  Serious: No
  Sender: FDA-Public Use
  Company Number: US-ABBOTT-11P-163-0719481-00

PATIENT
  Sex: Female
  Weight: 76.726 kg

DRUGS (5)
  1. VITAMIN D [Concomitant]
     Indication: VITAMIN SUPPLEMENTATION
  2. VASOTEC [Concomitant]
     Indication: HYPERTENSION
  3. DYAZIDE [Concomitant]
     Indication: HYPERTENSION
  4. HUMIRA [Suspect]
     Indication: RHEUMATOID ARTHRITIS
     Route: 058
     Dates: start: 20080101, end: 20110401
  5. ASPIRIN [Concomitant]
     Indication: PROPHYLAXIS

REACTIONS (4)
  - MIDDLE EAR EFFUSION [None]
  - EAR INFECTION [None]
  - SINUSITIS [None]
  - PYREXIA [None]
